FAERS Safety Report 17803723 (Version 3)
Quarter: 2025Q4

REPORT INFORMATION
  Report Type: Spontaneous
  Country: EU (occurrence: EU)
  Receive Date: 20200519
  Receipt Date: 20251222
  Transmission Date: 20260117
  Serious: Yes (Death, Hospitalization)
  Sender: MYLAN
  Company Number: EU-EMA-DD-20200429-Z4X8Q8-121748

PATIENT
  Age: 75 Year
  Sex: Male

DRUGS (5)
  1. ESOMEPRAZOLE [Interacting]
     Active Substance: ESOMEPRAZOLE
     Indication: Gastrooesophageal reflux disease
     Dosage: 40 MILLIGRAM, QD
  2. PIRFENIDONE [Interacting]
     Active Substance: PIRFENIDONE
     Indication: Idiopathic pulmonary fibrosis
     Dosage: 801 MILLIGRAM, Q8H
  3. PIRFENIDONE [Interacting]
     Active Substance: PIRFENIDONE
     Dosage: 267 MILLIGRAM, Q8H
  4. PIRFENIDONE [Interacting]
     Active Substance: PIRFENIDONE
     Dosage: 801 MILLIGRAM, Q8H, PAUSED THE TREATMENT FOR 2 WEEKS
  5. PIRFENIDONE [Interacting]
     Active Substance: PIRFENIDONE
     Dosage: 534 MILLIGRAM, Q8H

REACTIONS (8)
  - Escherichia sepsis [Fatal]
  - Multiple organ dysfunction syndrome [Fatal]
  - Lactic acidosis [Fatal]
  - Drug-induced liver injury [Unknown]
  - Acute hepatic failure [Unknown]
  - Pruritus [Unknown]
  - Drug interaction [Unknown]
  - Photosensitivity reaction [Unknown]
